FAERS Safety Report 13915743 (Version 1)
Quarter: 2017Q3

REPORT INFORMATION
  Report Type: Spontaneous
  Country: US (occurrence: None)
  Receive Date: 20170828
  Receipt Date: 20170828
  Transmission Date: 20171127
  Serious: Yes (Other)
  Sender: FDA-Public Use
  Company Number: None

PATIENT
  Age: 27 Year
  Sex: Female
  Weight: 57.61 kg

DRUGS (1)
  1. PARAGARD T 380A [Suspect]
     Active Substance: COPPER

REACTIONS (9)
  - Sciatica [None]
  - Flatulence [None]
  - Vaginal infection [None]
  - Nausea [None]
  - Oligomenorrhoea [None]
  - Vaginal discharge [None]
  - Dysmenorrhoea [None]
  - Hypoaesthesia [None]
  - Abdominal pain [None]

NARRATIVE: CASE EVENT DATE: 20170508
